FAERS Safety Report 21957570 (Version 1)
Quarter: 2023Q1

REPORT INFORMATION
  Report Type: Spontaneous
  Country: GB (occurrence: GB)
  Receive Date: 20230206
  Receipt Date: 20230206
  Transmission Date: 20230417
  Serious: Yes (Other)
  Sender: FDA-Public Use
  Company Number: None

PATIENT
  Age: 66 Year
  Sex: Female

DRUGS (2)
  1. RAMIPRIL [Suspect]
     Active Substance: RAMIPRIL
     Indication: Hypertension
     Dosage: 1.25MG FOR THE FIRST TWO WEEKS THEN 2.5MG
     Route: 048
     Dates: start: 20220107, end: 20220204
  2. BUDESONIDE [Concomitant]
     Active Substance: BUDESONIDE
     Indication: Asthma
     Dosage: 400 MICROGRAM DAILY; EACH EVENING

REACTIONS (4)
  - Cough [Unknown]
  - Oropharyngeal pain [Unknown]
  - Tonsillar hypertrophy [Unknown]
  - Tonsillar erythema [Unknown]

NARRATIVE: CASE EVENT DATE: 20220114
